FAERS Safety Report 6915925-2 (Version None)
Quarter: 2010Q3

REPORT INFORMATION
  Report Type: 
  Country: None (occurrence: None)
  Receive Date: 20100809
  Receipt Date: 20100809
  Transmission Date: 20110219
  Serious: No
  Sender: FDA-Public Use
  Company Number: None

PATIENT
  Age: 64 Year
  Sex: Female
  Weight: 58.9676 kg

DRUGS (1)
  1. SINGULAIR [Suspect]

REACTIONS (2)
  - ARTHRALGIA [None]
  - PRODUCT QUALITY ISSUE [None]
